FAERS Safety Report 4883603-X (Version None)
Quarter: 2006Q1

REPORT INFORMATION
  Report Type: 
  Country: None (occurrence: None)
  Receive Date: 20060117
  Receipt Date: 20060117
  Transmission Date: 20060701
  Serious: Yes (Life-Threatening, Hospitalization, Disabling)
  Sender: FDA-Public Use
  Company Number: None

PATIENT
  Age: 49 Year
  Sex: Female
  Weight: 69.4003 kg

DRUGS (3)
  1. YASMIN [Suspect]
     Indication: MENSTRUATION IRREGULAR
     Dosage: 3MG/0.03MG ONE PO
     Route: 048
     Dates: start: 20050808, end: 20051218
  2. LEXAPRO [Concomitant]
  3. CLARITIN [Concomitant]

REACTIONS (8)
  - ASTHENIA [None]
  - CEREBELLAR INFARCTION [None]
  - CEREBRAL INFARCTION [None]
  - DEHYDRATION [None]
  - NAUSEA [None]
  - VISUAL DISTURBANCE [None]
  - VISUAL FIELD DEFECT [None]
  - VOMITING [None]
